FAERS Safety Report 4312013-9 (Version None)
Quarter: 2004Q1

REPORT INFORMATION
  Report Type: 
  Country: None (occurrence: None)
  Receive Date: 20040303
  Receipt Date: 20040217
  Transmission Date: 20041129
  Serious: Yes (Life-Threatening)
  Sender: FDA-Public Use
  Company Number: 2004AP00832

PATIENT
  Age: 69 Year
  Sex: Male

DRUGS (8)
  1. IRESSA [Suspect]
     Indication: NON-SMALL CELL LUNG CANCER
     Dosage: 250 MG DAILY PO
     Route: 048
     Dates: start: 20030922, end: 20031020
  2. IRESSA [Suspect]
     Indication: SQUAMOUS CELL CARCINOMA
     Dosage: 250 MG DAILY PO
     Route: 048
     Dates: start: 20030922, end: 20031020
  3. BISOLVON [Concomitant]
  4. KELNAC [Concomitant]
  5. TAKEPRON [Concomitant]
  6. CODEINE PHOSPHATE [Concomitant]
  7. MOHRUS [Concomitant]
  8. RADIATION THERAPY [Concomitant]

REACTIONS (1)
  - ASTHMA [None]
